FAERS Safety Report 10149652 (Version 1)
Quarter: 2014Q2

REPORT INFORMATION
  Report Type: Spontaneous
  Country: US (occurrence: None)
  Receive Date: 20140501
  Receipt Date: 20140501
  Transmission Date: 20141212
  Serious: Yes (Hospitalization)
  Sender: FDA-Public Use
  Company Number: None

PATIENT
  Age: 24 Year
  Sex: Male

DRUGS (4)
  1. ACETAMINOPHEN [Suspect]
     Indication: PRODUCT USED FOR UNKNOWN INDICATION
     Route: 048
     Dates: start: 20130817, end: 20130817
  2. DIPHENHYDRAMINE [Concomitant]
  3. DIPHENOXYLATE/ATROPINE [Concomitant]
  4. HALOPERIDOL [Concomitant]

REACTIONS (10)
  - Overdose [None]
  - Hyperhidrosis [None]
  - Heart rate decreased [None]
  - Diplopia [None]
  - Tremor [None]
  - Agitation [None]
  - Headache [None]
  - Mental status changes [None]
  - Depressed level of consciousness [None]
  - Exposure via ingestion [None]
